FAERS Safety Report 12166126 (Version 1)
Quarter: 2016Q1

REPORT INFORMATION
  Report Type: Report from Study
  Country: US (occurrence: US)
  Receive Date: 20160309
  Receipt Date: 20160309
  Transmission Date: 20160526
  Serious: Yes (Other)
  Sender: FDA-Public Use
  Company Number: US-BAXALTA-2016BLT001246

PATIENT
  Age: 48 Year
  Sex: Female
  Weight: 108 kg

DRUGS (2)
  1. GAMMAGARD LIQUID [Suspect]
     Active Substance: HUMAN IMMUNOGLOBULIN G
     Dosage: 5 G, 2X A WEEK
     Route: 058
     Dates: start: 20160223
  2. GAMMAGARD LIQUID [Suspect]
     Active Substance: HUMAN IMMUNOGLOBULIN G
     Indication: PRIMARY IMMUNODEFICIENCY SYNDROME
     Dosage: 5 UNK, UNK
     Route: 058
     Dates: start: 201202

REACTIONS (2)
  - Rheumatoid arthritis [Not Recovered/Not Resolved]
  - Fungal skin infection [Recovering/Resolving]

NARRATIVE: CASE EVENT DATE: 20160226
